FAERS Safety Report 5549231-8 (Version None)
Quarter: 2007Q4

REPORT INFORMATION
  Report Type: 
  Country: None (occurrence: None)
  Receive Date: 20071210
  Receipt Date: 20071204
  Transmission Date: 20080405
  Serious: Yes (Death)
  Sender: FDA-Public Use
  Company Number: 163-21880-07110361

PATIENT
  Age: 62 Year
  Sex: Male
  Weight: 99.7913 kg

DRUGS (11)
  1. REVLIMID [Suspect]
     Indication: AMYLOIDOSIS
     Dosage: 25 MG, QD X21 DAYS EVERY 28 DAYS, ORAL
     Route: 048
     Dates: start: 20070625, end: 20070910
  2. DEXAMETHASONE TAB [Suspect]
     Indication: AMYLOIDOSIS
     Dates: end: 20070910
  3. MELPHALAN (MELPHALAN) [Suspect]
     Indication: DRUG USE FOR UNKNOWN INDICATION
     Dosage: ORAL
     Route: 048
     Dates: start: 20070920
  4. PREDNISONE [Suspect]
     Indication: DRUG USE FOR UNKNOWN INDICATION
     Dosage: ORAL
     Route: 048
     Dates: start: 20070920
  5. BUMEX [Concomitant]
  6. FAMVIR [Concomitant]
  7. OXYCODONE HCL [Concomitant]
  8. PLAVIX [Concomitant]
  9. ASPIRIN [Concomitant]
  10. GABAPENTIN [Concomitant]
  11. LEXAPRO [Concomitant]

REACTIONS (3)
  - AMYLOIDOSIS [None]
  - DISEASE PROGRESSION [None]
  - STAPHYLOCOCCAL SEPSIS [None]
